FAERS Safety Report 7314389-7 (Version None)
Quarter: 2011Q1

REPORT INFORMATION
  Report Type: 
  Country: None (occurrence: None)
  Receive Date: 20110225
  Receipt Date: 20100901
  Transmission Date: 20110831
  Serious: No
  Sender: FDA-Public Use
  Company Number: US-MYLANLABS-2010S1014444

PATIENT
  Age: 32 Year
  Sex: Female
  Weight: 72.12 kg

DRUGS (1)
  1. AMNESTEEM [Suspect]
     Indication: ACNE
     Route: 048
     Dates: start: 20100705, end: 20100805

REACTIONS (10)
  - HEADACHE [None]
  - ALOPECIA [None]
  - EPISTAXIS [None]
  - ARTHRALGIA [None]
  - FATIGUE [None]
  - ANXIETY [None]
  - EYE IRRITATION [None]
  - ABDOMINAL DISCOMFORT [None]
  - DRY SKIN [None]
  - SLEEP DISORDER [None]
